FAERS Safety Report 8785878 (Version 1)
Quarter: 2012Q4

REPORT INFORMATION
  Report Type: Spontaneous
  Country: TR (occurrence: None)
  Receive Date: 20120905
  Receipt Date: 20120905
  Transmission Date: 20130627
  Serious: Yes (Hospitalization)
  Sender: FDA-Public Use
  Company Number: B0825922A

PATIENT
  Age: 42 Year
  Sex: Female

DRUGS (2)
  1. CEFUROXIME AXETIL [Suspect]
     Indication: PROPHYLAXIS
  2. NAPROXEN [Concomitant]

REACTIONS (5)
  - Thrombotic thrombocytopenic purpura [None]
  - Haematuria [None]
  - Headache [None]
  - Nausea [None]
  - Anaemia [None]
